FAERS Safety Report 24328393 (Version 1)
Quarter: 2024Q3

REPORT INFORMATION
  Report Type: Spontaneous
  Country: US (occurrence: US)
  Receive Date: 20240917
  Receipt Date: 20240917
  Transmission Date: 20241016
  Serious: Yes (Hospitalization)
  Sender: ABBVIE
  Company Number: US-ABBVIE-5925963

PATIENT
  Sex: Male

DRUGS (1)
  1. DALVANCE [Suspect]
     Active Substance: DALBAVANCIN
     Indication: Skin infection
     Dosage: FORM STRENGTH: 1500 MILLIGRAM?FREQUENCY TEXT: 1 TIME
     Route: 042
     Dates: start: 20240912, end: 20240912

REACTIONS (3)
  - Rash [Recovering/Resolving]
  - Nausea [Recovering/Resolving]
  - Vomiting [Recovering/Resolving]

NARRATIVE: CASE EVENT DATE: 20240912
